FAERS Safety Report 24201102 (Version 1)
Quarter: 2024Q3

REPORT INFORMATION
  Report Type: Spontaneous
  Country: CN (occurrence: CN)
  Receive Date: 20240812
  Receipt Date: 20240812
  Transmission Date: 20241016
  Serious: Yes (Hospitalization, Other)
  Sender: NOVARTIS
  Company Number: CN-002147023-NVSC2024CN162427

PATIENT
  Age: 38 Year
  Sex: Female
  Weight: 60 kg

DRUGS (1)
  1. CARBAMAZEPINE [Suspect]
     Active Substance: CARBAMAZEPINE
     Indication: Headache
     Dosage: 200 MG, BID
     Route: 048
     Dates: start: 20240712, end: 20240722

REACTIONS (6)
  - Rash [Recovering/Resolving]
  - Pyrexia [Recovering/Resolving]
  - Pruritus [Recovering/Resolving]
  - Pain [Recovering/Resolving]
  - Drug eruption [Unknown]
  - Off label use [Unknown]

NARRATIVE: CASE EVENT DATE: 20240712
